FAERS Safety Report 25174916 (Version 1)
Quarter: 2025Q2

REPORT INFORMATION
  Report Type: Spontaneous
  Country: DE (occurrence: DE)
  Receive Date: 20250408
  Receipt Date: 20250408
  Transmission Date: 20250716
  Serious: Yes (Other)
  Sender: BAUSCH AND LOMB
  Company Number: DE-BAUSCH-BL-2025-004698

PATIENT
  Sex: Female
  Weight: 1.9 kg

DRUGS (6)
  1. BUDESONIDE [Suspect]
     Active Substance: BUDESONIDE
     Indication: Colitis ulcerative
     Dosage: IN 11 WEEK OF GESTATION PERIOD
     Route: 064
     Dates: start: 202310, end: 202402
  2. MESALAMINE [Suspect]
     Active Substance: MESALAMINE
     Indication: Colitis ulcerative
     Dosage: 4500 MG/D ORALLY, 1000 MG/D RECTALLY, IN 11 WEEK OF GESTATION PERIOD;
     Route: 064
     Dates: start: 202310, end: 202404
  3. MESALAMINE [Suspect]
     Active Substance: MESALAMINE
     Dosage: 4500 MG/D ORALLY, 1000 MG/D RECTALLY, IN 11 WEEK OF GESTATION PERIOD;
     Route: 064
     Dates: start: 202310, end: 202404
  4. PREDNISOLONE [Suspect]
     Active Substance: PREDNISOLONE
     Indication: Colitis ulcerative
     Dosage: (IV-THERAPY STARTED WITH 50 MG/D, 4 DAYS, PROBABLY WITH DECREASING DOSES)
     Route: 064
     Dates: start: 202311, end: 202311
  5. PREDNISOLONE [Suspect]
     Active Substance: PREDNISOLONE
     Dosage: IN 16 WEEK OF GASTATION PERIOD
     Route: 064
     Dates: start: 202311, end: 202402
  6. ASPIRIN [Concomitant]
     Active Substance: ASPIRIN
     Indication: Prophylaxis
     Route: 064
     Dates: start: 202310, end: 202311

REACTIONS (2)
  - Small for dates baby [Recovered/Resolved]
  - Foetal exposure during pregnancy [Unknown]

NARRATIVE: CASE EVENT DATE: 20231001
